FAERS Safety Report 11971786 (Version 1)
Quarter: 2016Q1

REPORT INFORMATION
  Report Type: Spontaneous
  Country: CN (occurrence: CN)
  Receive Date: 20160128
  Receipt Date: 20160128
  Transmission Date: 20160526
  Serious: Yes (Other)
  Sender: FDA-Public Use
  Company Number: CN-GILEAD-2016-0194253

PATIENT
  Age: 41 Year
  Sex: Male

DRUGS (2)
  1. HEPSERA [Suspect]
     Active Substance: ADEFOVIR DIPIVOXIL
     Indication: CHRONIC HEPATITIS B
     Dosage: 1 TABLET, QD
     Route: 048
     Dates: start: 2010
  2. HEPTODIN [Suspect]
     Active Substance: LAMIVUDINE
     Indication: CHRONIC HEPATITIS
     Dosage: 1 TABLET, QD
     Route: 048
     Dates: start: 2004

REACTIONS (2)
  - Blood bilirubin increased [Unknown]
  - Drug resistance [Recovered/Resolved]

NARRATIVE: CASE EVENT DATE: 2010
